FAERS Safety Report 11213660 (Version 1)
Quarter: 2015Q2

REPORT INFORMATION
  Report Type: Report from Study
  Country: CN (occurrence: CN)
  Receive Date: 20150623
  Receipt Date: 20150623
  Transmission Date: 20150821
  Serious: Yes (Other)
  Sender: FDA-Public Use
  Company Number: CN-MYLANLABS-2015M1020733

PATIENT

DRUGS (4)
  1. OXALIPLATIN. [Suspect]
     Active Substance: OXALIPLATIN
     Indication: HEPATIC CANCER METASTATIC
     Dosage: 85MG/M2 ON DAY 1, REPEATED EVERY 2 WEEKS, TOTAL OF 4 COURSES OF CHEMOTHERAPY
     Route: 042
     Dates: start: 20120917
  2. FLUOROURACIL. [Suspect]
     Active Substance: FLUOROURACIL
     Indication: HEPATIC CANCER METASTATIC
     Dosage: 400MG/M2 ON DAYS 1 AND 2, REPEATED EVERY 2 WEEKS, TOTAL OF 4 COURSES OF CHEMOTHERAPY
     Route: 042
     Dates: start: 20120917
  3. FLUOROURACIL. [Suspect]
     Active Substance: FLUOROURACIL
     Dosage: 600MG/M2 ON DAYS 1 AND 2, REPEATED EVERY 2 WEEKS, TOTAL OF 4 COURSES OF CHEMOTHERAPY
     Route: 041
     Dates: start: 20120917
  4. FOLINIC ACID [Suspect]
     Active Substance: LEUCOVORIN
     Indication: HEPATIC CANCER METASTATIC
     Dosage: 200MG/M2 ON DAYS 1 AND 2, REPEATED EVERY 2 WEEKS, TOTAL OF 4 COURSES OF CHEMOTHERAPY
     Route: 042
     Dates: start: 20120917

REACTIONS (1)
  - Hepatitis B [Unknown]

NARRATIVE: CASE EVENT DATE: 20121114
